FAERS Safety Report 20899560 (Version 1)
Quarter: 2022Q2

REPORT INFORMATION
  Report Type: Report from Study
  Country: US (occurrence: US)
  Receive Date: 20220601
  Receipt Date: 20220601
  Transmission Date: 20220720
  Serious: Yes (Other)
  Sender: FDA-Public Use
  Company Number: US-UCBSA-2022029876

PATIENT
  Age: 0 Year
  Sex: Male

DRUGS (20)
  1. CERTOLIZUMAB PEGOL [Suspect]
     Active Substance: CERTOLIZUMAB PEGOL
     Indication: Crohn^s disease
     Dosage: 400 MILLIGRAM, 2X/MONTH
     Route: 064
     Dates: start: 20180216, end: 20180619
  2. CERTOLIZUMAB PEGOL [Suspect]
     Active Substance: CERTOLIZUMAB PEGOL
     Dosage: 400 MILLIGRAM, MONTHLY (QM)
     Route: 064
     Dates: start: 20180719, end: 20181015
  3. ADACEL TDAP [Concomitant]
     Active Substance: TETANUS TOXOID, REDUCED DIPHTHERIA TOXOID AND ACELLULAR PERTUSSIS VACCINE ADSORBED, TDAP
     Indication: Immunisation
     Dosage: 1 SHOT, ONCE DAILY (QD)
     Route: 064
     Dates: start: 20180904, end: 20180904
  4. BENADRYL [Concomitant]
     Active Substance: DIPHENHYDRAMINE HYDROCHLORIDE
     Indication: Sinusitis
     Dosage: 25 MILLIGRAM, ONCE DAILY (QD)
     Route: 064
     Dates: start: 20180215, end: 20180215
  5. BENADRYL [Concomitant]
     Active Substance: DIPHENHYDRAMINE HYDROCHLORIDE
     Indication: Hypersensitivity
     Dosage: 1 DOSAGE FORM
     Route: 064
     Dates: start: 20180617, end: 20180623
  6. BUDESONIDE [Concomitant]
     Active Substance: BUDESONIDE
     Indication: Crohn^s disease
     Dosage: 6 MILLIGRAM, ONCE DAILY (QD)
     Route: 064
     Dates: start: 20180331, end: 20180629
  7. CALCIUM [Concomitant]
     Active Substance: CALCIUM
     Indication: Product used for unknown indication
     Dosage: 2361 MILLIGRAM, MONTHLY (QM)
     Route: 064
     Dates: start: 20180828, end: 20181104
  8. DIETARY SUPPLEMENT [Concomitant]
     Active Substance: DIETARY SUPPLEMENT
     Indication: Product used for unknown indication
     Dosage: 1 DOSAGE FORM, ONCE DAILY (QD)
     Route: 064
     Dates: start: 20160315, end: 20181104
  9. ESTROGENS [Concomitant]
     Active Substance: ESTROGENS
     Indication: Pregnancy
     Dosage: 8 MILLIGRAM, ONCE DAILY (QD)
     Route: 064
     Dates: start: 20180131, end: 20180416
  10. ESTROGENS [Concomitant]
     Active Substance: ESTROGENS
     Dosage: 2.3 WEEK, FACE , SCALP AND SKIN
     Route: 064
     Dates: start: 20180131, end: 20180416
  11. INFLUENZA VIRUS VACCINE [Concomitant]
     Active Substance: INFLUENZA VIRUS VACCINE
     Indication: Immunisation
     Dosage: 1 SHOT, ONCE DAILY (QD)
     Route: 064
     Dates: start: 20180904, end: 20180904
  12. KEFLEX [Concomitant]
     Active Substance: CEPHALEXIN
     Indication: Sinusitis
     Dosage: 500 MILLIGRAM, 2X/DAY (BID)
     Route: 064
     Dates: start: 20180617, end: 20180623
  13. MINERALS\VITAMINS [Concomitant]
     Active Substance: MINERALS\VITAMINS
     Indication: Product used for unknown indication
     Dosage: 1 DOSAGE FORM, ONCE DAILY (QD)
     Route: 064
     Dates: start: 20160315, end: 20181104
  14. PROGESTERONE [Concomitant]
     Active Substance: PROGESTERONE
     Indication: Pregnancy
     Dosage: 100 MILLIGRAM, ONCE DAILY (QD)
     Route: 064
     Dates: start: 20180214, end: 20180421
  15. RHOGAM [Concomitant]
     Active Substance: HUMAN RHO(D) IMMUNE GLOBULIN
     Indication: Product used for unknown indication
     Dosage: 1 SHOT, ONCE DAILY (QD)
     Route: 064
     Dates: start: 20180322, end: 20180322
  16. RHOGAM [Concomitant]
     Active Substance: HUMAN RHO(D) IMMUNE GLOBULIN
     Dosage: 1 SHOT, ONCE DAILY (QD)
     Route: 064
     Dates: start: 20180814, end: 20180814
  17. STOOL SOFTENER (DOCUSATE) [Concomitant]
     Active Substance: DOCUSATE
     Indication: Constipation
     Dosage: UNK, ONCE DAILY (QD)
     Route: 064
     Dates: start: 20180202, end: 20181104
  18. TYLENOL [Concomitant]
     Active Substance: ACETAMINOPHEN
     Indication: Headache
     Dosage: 650 MILLIGRAM, 2X/MONTH
     Route: 064
     Dates: start: 20180202, end: 20180423
  19. TYLENOL [Concomitant]
     Active Substance: ACETAMINOPHEN
     Dosage: 650 MILLIGRAM
     Route: 064
     Dates: start: 20180424, end: 20180706
  20. VITAMIN D3 [Concomitant]
     Active Substance: CHOLECALCIFEROL
     Indication: Product used for unknown indication
     Dosage: 2000 INTERNATIONAL UNIT, ONCE DAILY (QD)
     Route: 064
     Dates: start: 20180202, end: 20181104

REACTIONS (3)
  - Speech disorder developmental [Unknown]
  - Maternal exposure before pregnancy [Unknown]
  - Maternal exposure during pregnancy [Unknown]

NARRATIVE: CASE EVENT DATE: 20180216
